FAERS Safety Report 6671802-6 (Version None)
Quarter: 2010Q2

REPORT INFORMATION
  Report Type: 
  Country: None (occurrence: None)
  Receive Date: 20100406
  Receipt Date: 20100406
  Transmission Date: 20101027
  Serious: Yes (Hospitalization)
  Sender: FDA-Public Use
  Company Number: None

PATIENT
  Sex: Male
  Weight: 78.4 kg

DRUGS (2)
  1. VANCOMYCIN [Suspect]
     Indication: CULTURE NEGATIVE
     Dosage: 875MG Q12H IV
     Route: 042
     Dates: start: 20100118, end: 20100206
  2. VANCOMYCIN [Suspect]
     Indication: ENDOCARDITIS
     Dosage: 875MG Q12H IV
     Route: 042
     Dates: start: 20100118, end: 20100206

REACTIONS (5)
  - DRUG INTOLERANCE [None]
  - DRUG RASH WITH EOSINOPHILIA AND SYSTEMIC SYMPTOMS [None]
  - FEELING ABNORMAL [None]
  - NAUSEA [None]
  - VOMITING [None]
